FAERS Safety Report 10418244 (Version 1)
Quarter: 2014Q2

REPORT INFORMATION
  Report Type: Spontaneous
  Country: US (occurrence: None)
  Receive Date: 20140609
  Receipt Date: 20140609
  Transmission Date: 20141212
  Serious: No
  Sender: FDA-Public Use
  Company Number: 2014TUS001489

PATIENT
  Age: 43 Year
  Sex: Female
  Weight: 65.8 kg

DRUGS (1)
  1. BRINTELLIX [Suspect]
     Indication: MAJOR DEPRESSION
     Dates: start: 20140203

REACTIONS (1)
  - Constipation [None]
